FAERS Safety Report 4519234-0 (Version None)
Quarter: 2004Q4

REPORT INFORMATION
  Report Type: 
  Country: None (occurrence: None)
  Receive Date: 20041201
  Receipt Date: 20041115
  Transmission Date: 20050328
  Serious: Yes (Hospitalization)
  Sender: FDA-Public Use
  Company Number: 2004CG02279

PATIENT
  Age: 82 Year
  Sex: Male

DRUGS (5)
  1. NEXIUM [Suspect]
     Dosage: 20 MG QD PO
     Route: 048
     Dates: start: 20030701
  2. MODOPAR [Suspect]
     Dosage: 50 MG + 12.5 MG BID
     Dates: start: 20020610
  3. PREVISCAN [Suspect]
     Dosage: 0.25 DF QD PO
     Route: 048
     Dates: start: 20000701
  4. HALDOL [Suspect]
     Dosage: 0.2 MG TID PO
     Route: 048
     Dates: start: 20031024, end: 20041018
  5. CREON ^DUPHAR^ [Suspect]
     Dosage: 25000 U TID PO
     Route: 048
     Dates: end: 20041018

REACTIONS (4)
  - ANAL STENOSIS [None]
  - COLITIS ISCHAEMIC [None]
  - MALAISE [None]
  - MASS [None]
